FAERS Safety Report 21358241 (Version 1)
Quarter: 2022Q3

REPORT INFORMATION
  Report Type: Spontaneous
  Country: US (occurrence: US)
  Receive Date: 20220921
  Receipt Date: 20220921
  Transmission Date: 20221026
  Serious: Yes (Other)
  Sender: FDA-Public Use
  Company Number: US-STRIDES ARCOLAB LIMITED-2022SP008941

PATIENT
  Age: 71 Year
  Sex: Male

DRUGS (1)
  1. TRIAMCINOLONE ACETONIDE [Suspect]
     Active Substance: TRIAMCINOLONE ACETONIDE
     Indication: Subacute cutaneous lupus erythematosus
     Dosage: UNK (TOPICAL TRIAMCINOLONE CREAM)
     Route: 061

REACTIONS (1)
  - Drug ineffective for unapproved indication [Unknown]
